FAERS Safety Report 12876459 (Version 1)
Quarter: 2016Q4

REPORT INFORMATION
  Report Type: Spontaneous
  Country: US (occurrence: US)
  Receive Date: 20161024
  Receipt Date: 20161024
  Transmission Date: 20170207
  Serious: Yes (Death)
  Sender: FDA-Public Use
  Company Number: US-PFIZER INC-2016487928

PATIENT
  Age: 81 Year
  Sex: Female
  Weight: 48.53 kg

DRUGS (1)
  1. TIKOSYN [Suspect]
     Active Substance: DOFETILIDE
     Indication: ATRIAL FIBRILLATION
     Dosage: 500 UG, 2X/DAY(500MCG ONE TABLET TWICE A DAY)
     Dates: start: 2010

REACTIONS (1)
  - Death [Fatal]
